FAERS Safety Report 13912587 (Version 2)
Quarter: 2017Q4

REPORT INFORMATION
  Report Type: Report from Study
  Country: BR (occurrence: BR)
  Receive Date: 20170828
  Receipt Date: 20171116
  Transmission Date: 20180320
  Serious: Yes (Other)
  Sender: FDA-Public Use
  Company Number: PHHY2015BR154443

PATIENT
  Sex: Female
  Weight: 76 kg

DRUGS (1)
  1. SANDOSTATIN LAR DEPOT [Suspect]
     Active Substance: OCTREOTIDE ACETATE
     Indication: ACROMEGALY
     Dosage: 20 MG, QMO/EVERY 28 DAYS
     Route: 030
     Dates: start: 2005

REACTIONS (10)
  - Headache [Unknown]
  - Intervertebral disc protrusion [Unknown]
  - Osteoarthritis [Unknown]
  - Thyroid disorder [Unknown]
  - Pain in extremity [Unknown]
  - Diabetes mellitus inadequate control [Unknown]
  - Peripheral swelling [Unknown]
  - Diabetes mellitus [Unknown]
  - Rheumatic disorder [Unknown]
  - Migraine [Unknown]

NARRATIVE: CASE EVENT DATE: 2006
